FAERS Safety Report 9968277 (Version 1)
Quarter: 2014Q1

REPORT INFORMATION
  Report Type: Report from Study
  Country: US (occurrence: US)
  Receive Date: 20140306
  Receipt Date: 20140306
  Transmission Date: 20141002
  Serious: No
  Sender: FDA-Public Use
  Company Number: US-ABBVIE-13P-163-1146349-00

PATIENT
  Age: 52 Year
  Sex: Female

DRUGS (3)
  1. HUMIRA [Suspect]
     Indication: CROHN^S DISEASE
     Dates: start: 20130816, end: 20130816
  2. HUMIRA [Suspect]
     Dates: start: 20130830, end: 20130830
  3. HUMIRA [Suspect]

REACTIONS (1)
  - Arthropod sting [Not Recovered/Not Resolved]
